FAERS Safety Report 24214567 (Version 2)
Quarter: 2025Q1

REPORT INFORMATION
  Report Type: Spontaneous
  Country: FR (occurrence: FR)
  Receive Date: 20240815
  Receipt Date: 20250328
  Transmission Date: 20250408
  Serious: Yes (Hospitalization)
  Sender: TEVA
  Company Number: FR-TEVA-VS-3231409

PATIENT
  Age: 26 Year
  Sex: Female

DRUGS (9)
  1. PREDNISOLONE [Suspect]
     Active Substance: PREDNISOLONE
     Indication: Crohn^s disease
     Route: 065
  2. ISONIAZID [Suspect]
     Active Substance: ISONIAZID
     Indication: Tuberculosis of eye
     Route: 065
  3. ISONIAZID [Suspect]
     Active Substance: ISONIAZID
     Indication: Tuberculosis of eye
     Route: 065
  4. ADALIMUMAB [Suspect]
     Active Substance: ADALIMUMAB
     Indication: Crohn^s disease
     Route: 065
  5. RIFAMPIN [Suspect]
     Active Substance: RIFAMPIN
     Indication: Tuberculosis of eye
     Route: 065
  6. RIFAMPIN [Suspect]
     Active Substance: RIFAMPIN
     Indication: Tuberculosis of eye
     Route: 065
  7. PYRAZINAMIDE [Suspect]
     Active Substance: PYRAZINAMIDE
     Indication: Tuberculosis of eye
     Route: 065
  8. PYRAZINAMIDE [Suspect]
     Active Substance: PYRAZINAMIDE
     Indication: Tuberculosis of eye
     Route: 065
  9. PREDNISOLONE [Suspect]
     Active Substance: PREDNISOLONE
     Indication: Crohn^s disease
     Route: 065

REACTIONS (3)
  - Immune reconstitution inflammatory syndrome [Recovering/Resolving]
  - Peritonitis [Recovering/Resolving]
  - Maternal exposure during pregnancy [Unknown]
